FAERS Safety Report 9841614 (Version 1)
Quarter: 2013Q4

REPORT INFORMATION
  Report Type: Spontaneous
  Country: US (occurrence: None)
  Receive Date: 20131223
  Receipt Date: 20131223
  Transmission Date: 20140711
  Serious: Yes (Other)
  Sender: FDA-Public Use
  Company Number: 221961LEO

PATIENT
  Age: 58 Year
  Sex: Female

DRUGS (2)
  1. PICATO [Suspect]
     Indication: SOLAR LENTIGO
     Dosage: (DAILY), TOPICAL
     Route: 061
     Dates: start: 20130518, end: 20130519
  2. ASPIRIN (ACETYLSALICYLIC ACID) [Concomitant]

REACTIONS (1)
  - Headache [None]
